FAERS Safety Report 7803339-2 (Version None)
Quarter: 2011Q4

REPORT INFORMATION
  Report Type: 
  Country: None (occurrence: None)
  Receive Date: 20111007
  Receipt Date: 20111005
  Transmission Date: 20120403
  Serious: Yes (Hospitalization, Other)
  Sender: FDA-Public Use
  Company Number: RO-ABBOTT-11P-135-0859598-00

PATIENT
  Age: 10 Year
  Sex: Female

DRUGS (3)
  1. AMPRENAVIR [Suspect]
     Indication: HIV INFECTION
     Dates: start: 20010101
  2. RITONAVIR [Suspect]
     Indication: HIV INFECTION
     Dates: start: 20010101
  3. ABACAVIR [Suspect]
     Indication: HIV INFECTION
     Dates: start: 20010101

REACTIONS (3)
  - HEPATIC ENZYME INCREASED [None]
  - THERAPEUTIC PRODUCT INEFFECTIVE [None]
  - HEPATOTOXICITY [None]
